FAERS Safety Report 10515100 (Version 1)
Quarter: 2014Q4

REPORT INFORMATION
  Report Type: Not Available
  Country: US (occurrence: US)
  Receive Date: 20141014
  Receipt Date: 20141014
  Transmission Date: 20150528
  Serious: No
  Sender: FDA-Public Use
  Company Number: US-LUPIN PHARMACEUTICALS INC.-E2B_00001258

PATIENT
  Age: 41 Year
  Sex: Female
  Weight: 59.02 kg

DRUGS (2)
  1. VALTREX [Concomitant]
     Active Substance: VALACYCLOVIR HYDROCHLORIDE
     Indication: PRODUCT USED FOR UNKNOWN INDICATION
  2. CEPHALEXIN CAPSULES 500 MG [Suspect]
     Active Substance: CEPHALEXIN
     Indication: INFECTION
     Dates: start: 20130904

REACTIONS (1)
  - Somnolence [Not Recovered/Not Resolved]

NARRATIVE: CASE EVENT DATE: 20130904
